FAERS Safety Report 20404148 (Version 1)
Quarter: 2022Q1

REPORT INFORMATION
  Report Type: Report from Study
  Country: RO (occurrence: RO)
  Receive Date: 20220131
  Receipt Date: 20220131
  Transmission Date: 20220424
  Serious: Yes (Death, Other)
  Sender: FDA-Public Use
  Company Number: RO-JNJFOC-20220147216

PATIENT

DRUGS (3)
  1. DARATUMUMAB [Suspect]
     Active Substance: DARATUMUMAB
     Indication: Plasma cell myeloma
     Route: 065
  2. CARFILZOMIB [Suspect]
     Active Substance: CARFILZOMIB
     Indication: Plasma cell myeloma
     Route: 065
  3. DEXAMETHASONE [Suspect]
     Active Substance: DEXAMETHASONE
     Indication: Plasma cell myeloma
     Route: 065

REACTIONS (12)
  - Arrhythmia [Fatal]
  - Neuropathy peripheral [Unknown]
  - Cardiac failure [Unknown]
  - Acute kidney injury [Unknown]
  - Neutropenia [Unknown]
  - Thrombocytopenia [Unknown]
  - Viral infection [Unknown]
  - Diarrhoea [Unknown]
  - Anaemia [Unknown]
  - Hypertension [Unknown]
  - Respiratory tract infection [Unknown]
  - Infusion related reaction [Unknown]
